FAERS Safety Report 7321445-6 (Version None)
Quarter: 2011Q1

REPORT INFORMATION
  Report Type: 
  Country: None (occurrence: None)
  Receive Date: 20110228
  Receipt Date: 20100630
  Transmission Date: 20110831
  Serious: Yes (Other)
  Sender: FDA-Public Use
  Company Number: US-PFIZER INC-2010082658

PATIENT
  Sex: Female
  Weight: 99.773 kg

DRUGS (2)
  1. GEODON [Suspect]
     Indication: SCHIZOPHRENIA
     Dosage: 80 MG, 2X/DAY
     Dates: start: 20080101
  2. MULTI-VITAMINS [Concomitant]
     Dosage: UNK

REACTIONS (5)
  - ANXIETY [None]
  - TREMOR [None]
  - DRUG DOSE OMISSION [None]
  - WITHDRAWAL SYNDROME [None]
  - FATIGUE [None]
